FAERS Safety Report 20181753 (Version 4)
Quarter: 2023Q1

REPORT INFORMATION
  Report Type: Other
  Country: ZA (occurrence: None)
  Receive Date: 20211214
  Receipt Date: 20230320
  Transmission Date: 20230418
  Serious: Yes (Other)
  Sender: FDA-Public Use
  Company Number: ZA-ROCHE-2696960

PATIENT
  Sex: Female

DRUGS (2)
  1. MABTHERA [Suspect]
     Active Substance: RITUXIMAB
     Indication: Rheumatoid arthritis
     Dosage: FREQUENCY: DAY 1 AND DAY 15
     Route: 042
     Dates: end: 20210614
  2. MABTHERA [Suspect]
     Active Substance: RITUXIMAB
     Dosage: REPEATED 6-MONTHLY?LAST INFUSION WAS 23-SEP-2022
     Route: 042

REACTIONS (11)
  - C-reactive protein increased [Unknown]
  - C-reactive protein increased [Unknown]
  - Rheumatoid arthritis [Unknown]
  - Lupus nephritis [Unknown]
  - C-reactive protein increased [Unknown]
  - Blood creatinine increased [Unknown]
  - COVID-19 [Unknown]
  - Rheumatoid arthritis [Unknown]
  - Platelet count increased [Unknown]
  - Blood creatinine increased [Unknown]
  - Treatment delayed [Unknown]

NARRATIVE: CASE EVENT DATE: 20220101
